FAERS Safety Report 8899157 (Version 1)
Quarter: 2012Q4

REPORT INFORMATION
  Report Type: 
  Country: US (occurrence: US)
  Receive Date: 20121108
  Receipt Date: 20121108
  Transmission Date: 20130627
  Serious: No
  Sender: FDA-Public Use
  Company Number: US-AMGEN-USASP2012035079

PATIENT
  Age: 58 Year
  Sex: Female
  Weight: 88.44 kg

DRUGS (12)
  1. ENBREL [Suspect]
     Indication: PRODUCT USED FOR UNKNOWN INDICATION
     Dosage: 50 mg, qwk
     Route: 058
  2. NEXIUM                             /01479302/ [Concomitant]
     Dosage: 20 mg, UNK
  3. FOLIC ACID [Concomitant]
     Dosage: UNK
  4. LISINOPRIL + HIDROCLOROTIAZIDA [Concomitant]
     Dosage: 10 UNK, UNK
  5. LISINOPRIL [Concomitant]
     Dosage: 10 mg, UNK
  6. CLARITIN                           /00413701/ [Concomitant]
     Dosage: 10 mg, UNK
  7. ALBUTEROL                          /00139501/ [Concomitant]
     Dosage: 90 mug, UNK
  8. FLOVENT [Concomitant]
     Dosage: 110 mug, UNK
  9. FISH OIL [Concomitant]
     Dosage: UNK
  10. CENTRUM SILVER                     /01292501/ [Concomitant]
  11. CALCIUM +D                         /00188401/ [Concomitant]
     Dosage: UNK
  12. ASPIRIN [Concomitant]
     Dosage: 81 mg, UNK

REACTIONS (2)
  - Fatigue [Unknown]
  - Psoriasis [Unknown]
